FAERS Safety Report 13595096 (Version 1)
Quarter: 2017Q2

REPORT INFORMATION
  Report Type: Spontaneous
  Country: US (occurrence: US)
  Receive Date: 20170531
  Receipt Date: 20170531
  Transmission Date: 20170830
  Serious: Yes (Other)
  Sender: FDA-Public Use
  Company Number: US-STRIDES ARCOLAB LIMITED-2016SP018595

PATIENT

DRUGS (4)
  1. ZALCITABINE [Concomitant]
     Active Substance: ZALCITABINE
     Indication: HIV INFECTION
     Dosage: UNK
  2. NEVIRAPINE. [Suspect]
     Active Substance: NEVIRAPINE
     Dosage: 200 MG, BID
  3. NEVIRAPINE. [Suspect]
     Active Substance: NEVIRAPINE
     Indication: HIV INFECTION
     Dosage: 200 MG, DAILY
  4. ZIDOVUDINE. [Concomitant]
     Active Substance: ZIDOVUDINE
     Indication: HIV INFECTION
     Dosage: UNK

REACTIONS (6)
  - Drug-induced liver injury [Recovered/Resolved]
  - Jaundice [Recovered/Resolved]
  - Rash maculo-papular [Unknown]
  - Ocular icterus [Recovered/Resolved]
  - Pyrexia [Unknown]
  - Rash [Unknown]
